FAERS Safety Report 11166415 (Version 1)
Quarter: 2015Q2

REPORT INFORMATION
  Report Type: Spontaneous
  Country: IT (occurrence: IT)
  Receive Date: 20150605
  Receipt Date: 20150605
  Transmission Date: 20150821
  Serious: Yes (Other)
  Sender: FDA-Public Use
  Company Number: IT-ACCORD-031117

PATIENT
  Age: 60 Year
  Sex: Female
  Weight: 64 kg

DRUGS (2)
  1. ANASTROZOLE ACCORD [Suspect]
     Active Substance: ANASTROZOLE
     Indication: BREAST CANCER
     Dosage: STRENGTH: 1 MG
     Route: 048
     Dates: start: 20150513, end: 20150517
  2. TIROSINT [Concomitant]
     Active Substance: LEVOTHYROXINE SODIUM
     Dosage: STRENGTH: 25 MICROGRAM/1 ML SOLUTION

REACTIONS (3)
  - Asthenia [Recovered/Resolved]
  - Somnolence [Recovered/Resolved]
  - Feeling abnormal [Recovered/Resolved]

NARRATIVE: CASE EVENT DATE: 20150514
